FAERS Safety Report 13582685 (Version 1)
Quarter: 2017Q2

REPORT INFORMATION
  Report Type: Spontaneous
  Country: GB (occurrence: GB)
  Receive Date: 20170525
  Receipt Date: 20170525
  Transmission Date: 20170830
  Serious: Yes (Other)
  Sender: FDA-Public Use
  Company Number: GB-009507513-1705GBR012961

PATIENT
  Age: 51 Year

DRUGS (3)
  1. DEXAMETHASONE. [Suspect]
     Active Substance: DEXAMETHASONE
     Indication: PLASMA CELL MYELOMA
     Dosage: 4 CYCLES OF VELCADE-THALIDOMIDE-DEXAMETHASONE (VTD) THERAPY WERE ADMINISTERED (UNKNOWN)
     Route: 065
  2. THALIDOMIDE [Suspect]
     Active Substance: THALIDOMIDE
     Indication: PLASMA CELL MYELOMA
     Dosage: 4 CYCLES OF VELCADE-THALIDOMIDE-DEXAMETHASONE (VTD) THERAPY WERE ADMINISTERED (UNKNOWN)
     Route: 065
  3. VELCADE [Suspect]
     Active Substance: BORTEZOMIB
     Indication: PLASMA CELL MYELOMA
     Dosage: 4 CYCLES OF VELCADE-THALIDOMIDE-DEXAMETHASONE (VTD) THERAPY WERE ADMINISTERED (UNKNOWN)
     Route: 065

REACTIONS (1)
  - Plasma cell myeloma recurrent [Unknown]
